FAERS Safety Report 5832478-0 (Version None)
Quarter: 2008Q3

REPORT INFORMATION
  Report Type: 
  Country: None (occurrence: None)
  Receive Date: 20080804
  Receipt Date: 20080724
  Transmission Date: 20090109
  Serious: Yes (Other)
  Sender: FDA-Public Use
  Company Number: US-BAYER-200813021BCC

PATIENT
  Age: 90 Year
  Sex: Female
  Weight: 67 kg

DRUGS (9)
  1. PHILLIPS MILK OF MAGNESIA CHERRY [Suspect]
     Indication: CONSTIPATION
     Dosage: TOTAL DAILY DOSE: 30 ML
     Route: 048
     Dates: start: 20080101
  2. PHILLIPS MILK OF MAGNESIA MINT [Suspect]
     Indication: CONSTIPATION
     Dosage: TOTAL DAILY DOSE: 30 ML
     Route: 048
     Dates: start: 20080101
  3. METHIMAZOLE [Suspect]
     Indication: DRUG USE FOR UNKNOWN INDICATION
  4. PROPYL-THIOURACIL [Concomitant]
  5. LISINOPRIL [Concomitant]
  6. OXYBUTIN [Concomitant]
  7. SIMVASTATIN [Concomitant]
  8. OMEPRAZOLE [Concomitant]
  9. METOPROLOL [Concomitant]

REACTIONS (1)
  - RECTAL HAEMORRHAGE [None]
